FAERS Safety Report 5837196-0 (Version None)
Quarter: 2008Q3

REPORT INFORMATION
  Report Type: 
  Country: None (occurrence: None)
  Receive Date: 20080807
  Receipt Date: 20080730
  Transmission Date: 20090109
  Serious: No
  Sender: FDA-Public Use
  Company Number: FR-WYE-H03718908

PATIENT
  Age: 78 Year
  Sex: Female

DRUGS (4)
  1. INIPOMP [Suspect]
     Indication: ABDOMINAL PAIN UPPER
     Route: 048
     Dates: start: 20070713, end: 20071210
  2. SOLUPRED [Suspect]
     Indication: BRONCHITIS CHRONIC
     Route: 048
  3. CALCIDOSE [Concomitant]
     Indication: OSTEOPOROSIS
     Route: 048
  4. IRBESARTAN [Concomitant]
     Indication: HYPERTENSION
     Route: 048

REACTIONS (1)
  - LICHEN PLANUS [None]
